FAERS Safety Report 11826510 (Version 1)
Quarter: 2015Q4

REPORT INFORMATION
  Report Type: Spontaneous
  Country: CA (occurrence: CA)
  Receive Date: 20151211
  Receipt Date: 20151211
  Transmission Date: 20160305
  Serious: Yes (Other)
  Sender: FDA-Public Use
  Company Number: CA-WARNER CHILCOTT, LLC-1045358

PATIENT
  Age: 64 Year
  Sex: Female

DRUGS (6)
  1. PLAQUENIL [Suspect]
     Active Substance: HYDROXYCHLOROQUINE SULFATE
     Route: 048
  2. ACTONEL [Suspect]
     Active Substance: RISEDRONATE SODIUM
  3. METHOTREXATE SODIUM. [Suspect]
     Active Substance: METHOTREXATE SODIUM
     Route: 058
  4. SELECTIVE IMMUNOSUPPRESSANTS [Suspect]
     Active Substance: UNSPECIFIED INGREDIENT
     Route: 048
     Dates: start: 20150712
  5. PREGABALIN. [Suspect]
     Active Substance: PREGABALIN
  6. ARAVA [Suspect]
     Active Substance: LEFLUNOMIDE
     Route: 048

REACTIONS (3)
  - Lower respiratory tract infection [Unknown]
  - Parkinson^s disease [Not Recovered/Not Resolved]
  - Impaired work ability [None]
